FAERS Safety Report 5412953-3 (Version None)
Quarter: 2007Q3

REPORT INFORMATION
  Report Type: 
  Country: None (occurrence: None)
  Receive Date: 20070813
  Receipt Date: 20070801
  Transmission Date: 20080115
  Serious: Yes (Other)
  Sender: FDA-Public Use
  Company Number: US-PFIZER INC-2007064208

PATIENT
  Sex: Male
  Weight: 83 kg

DRUGS (3)
  1. NEURONTIN [Suspect]
     Indication: PAIN
  2. FENTANYL [Suspect]
     Indication: PERINEAL PAIN
     Dosage: TEXT:25 UG/HR
     Route: 062
  3. AMBIEN [Suspect]
     Indication: INSOMNIA
     Dates: start: 20070501

REACTIONS (14)
  - AGITATION [None]
  - APHASIA [None]
  - ASTHENIA [None]
  - DRUG ADMINISTRATION ERROR [None]
  - DYSARTHRIA [None]
  - DYSPNOEA [None]
  - FATIGUE [None]
  - HALLUCINATION [None]
  - HEADACHE [None]
  - HOT FLUSH [None]
  - HYPERHIDROSIS [None]
  - INSOMNIA [None]
  - RETINAL DETACHMENT [None]
  - TREMOR [None]
